FAERS Safety Report 4530491-7 (Version None)
Quarter: 2004Q4

REPORT INFORMATION
  Report Type: 
  Country: None (occurrence: None)
  Receive Date: 20041216
  Receipt Date: 20041216
  Transmission Date: 20050328
  Serious: Yes (Other)
  Sender: FDA-Public Use
  Company Number: None

PATIENT
  Age: 39 Year
  Sex: Female
  Weight: 65.7716 kg

DRUGS (1)
  1. SYNAREL [Suspect]
     Indication: ENDOMETRIOSIS
     Dosage: INHALED  ONCE DAILY
     Route: 055
     Dates: start: 19971001, end: 19980401

REACTIONS (11)
  - CONSTIPATION [None]
  - DRUG TOXICITY [None]
  - GASTROINTESTINAL DISORDER [None]
  - HEADACHE [None]
  - HOT FLUSH [None]
  - HYPOTHALAMO-PITUITARY DISORDERS [None]
  - LIVER DISORDER [None]
  - PARAESTHESIA [None]
  - SKIN DISORDER [None]
  - SWELLING [None]
  - WEIGHT INCREASED [None]
